FAERS Safety Report 11243917 (Version 1)
Quarter: 2015Q3

REPORT INFORMATION
  Report Type: Spontaneous
  Country: US (occurrence: US)
  Receive Date: 20150707
  Receipt Date: 20150707
  Transmission Date: 20151125
  Serious: Yes (Other)
  Sender: FDA-Public Use
  Company Number: US-PFIZER INC-2015220936

PATIENT
  Age: 34 Year
  Sex: Male
  Weight: 90 kg

DRUGS (2)
  1. NEURONTIN [Suspect]
     Active Substance: GABAPENTIN
     Dosage: UNK
  2. NEURONTIN [Suspect]
     Active Substance: GABAPENTIN
     Dosage: 1800 MG, UNK

REACTIONS (5)
  - Myalgia [Unknown]
  - Pain [Unknown]
  - Neuralgia [Unknown]
  - Fibromyalgia [Unknown]
  - Bipolar disorder [Unknown]
